FAERS Safety Report 14668747 (Version 2)
Quarter: 2018Q1

REPORT INFORMATION
  Report Type: Spontaneous
  Country: HU (occurrence: HU)
  Receive Date: 20180322
  Receipt Date: 20180327
  Transmission Date: 20180509
  Serious: Yes (Other)
  Sender: FDA-Public Use
  Company Number: HU-PFIZER INC-2018113416

PATIENT
  Age: 47 Year
  Sex: Male

DRUGS (5)
  1. CYCLOPHOSPHAMIDE. [Suspect]
     Active Substance: CYCLOPHOSPHAMIDE
     Indication: DIFFUSE LARGE B-CELL LYMPHOMA
     Dosage: 1300 MG, (8 CYCLES)
     Dates: start: 200606, end: 200701
  2. DOXORUBICIN HCL [Suspect]
     Active Substance: DOXORUBICIN HYDROCHLORIDE
     Indication: DIFFUSE LARGE B-CELL LYMPHOMA
     Dosage: 90 MG, (8 CYCLES)
     Dates: start: 200606, end: 200701
  3. RITUXIMAB. [Suspect]
     Active Substance: RITUXIMAB
     Indication: DIFFUSE LARGE B-CELL LYMPHOMA
     Dosage: 700 MG, (8 CYCLES)
     Dates: start: 200606, end: 200701
  4. VINCRISTINE [Concomitant]
     Active Substance: VINCRISTINE
     Dosage: 2 MG, (8 CYCLES)
     Dates: start: 200606, end: 200701
  5. PREDNISON [Concomitant]
     Active Substance: PREDNISONE
     Dosage: UNK, (8 CYCLES)
     Dates: start: 200606, end: 200701

REACTIONS (1)
  - Actinomycosis [Recovered/Resolved]

NARRATIVE: CASE EVENT DATE: 201504
